FAERS Safety Report 12830861 (Version 2)
Quarter: 2016Q4

REPORT INFORMATION
  Report Type: Spontaneous
  Country: AU (occurrence: AU)
  Receive Date: 20161007
  Receipt Date: 20161024
  Transmission Date: 20170207
  Serious: Yes (Life-Threatening, Hospitalization, Other)
  Sender: FDA-Public Use
  Company Number: AU-BAUSCH-BL-2016-024666

PATIENT
  Age: 43 Year
  Sex: Male

DRUGS (1)
  1. DICLOFENAC [Suspect]
     Active Substance: DICLOFENAC
     Indication: BACK PAIN
     Route: 065

REACTIONS (3)
  - Hypokalaemia [Recovered/Resolved]
  - Overdose [Recovered/Resolved]
  - Renal tubular acidosis [Recovered/Resolved]

NARRATIVE: CASE EVENT DATE: 201602
